FAERS Safety Report 21988942 (Version 2)
Quarter: 2023Q1

REPORT INFORMATION
  Report Type: Report from Study
  Country: US (occurrence: US)
  Receive Date: 20230214
  Receipt Date: 20230219
  Transmission Date: 20230417
  Serious: No
  Sender: FDA-Public Use
  Company Number: US-002147023-NVSC2023US028669

PATIENT
  Sex: Female

DRUGS (1)
  1. KESIMPTA [Suspect]
     Active Substance: OFATUMUMAB
     Indication: Multiple sclerosis
     Dosage: UNK
     Route: 058
     Dates: start: 20220908

REACTIONS (4)
  - COVID-19 [Recovering/Resolving]
  - Sinus congestion [Recovering/Resolving]
  - Sinus headache [Recovering/Resolving]
  - Cluster headache [Recovering/Resolving]
